FAERS Safety Report 25528667 (Version 1)
Quarter: 2025Q3

REPORT INFORMATION
  Report Type: Spontaneous
  Country: US (occurrence: US)
  Receive Date: 20250708
  Receipt Date: 20250708
  Transmission Date: 20251021
  Serious: Yes (Other)
  Sender: SANOFI AVENTIS
  Company Number: US-SA-2025SA190296

PATIENT
  Sex: Female

DRUGS (1)
  1. FABRAZYME [Suspect]
     Active Substance: AGALSIDASE BETA
     Indication: Fabry^s disease
     Dosage: 1 MG/KG, QOW
     Route: 041
     Dates: start: 2020

REACTIONS (4)
  - Neuropathy peripheral [Unknown]
  - Globotriaosylsphingosine increased [Unknown]
  - Abdominal pain [Unknown]
  - Therapeutic response shortened [Unknown]
